FAERS Safety Report 8210678-2 (Version None)
Quarter: 2012Q1

REPORT INFORMATION
  Report Type: 
  Country: None (occurrence: None)
  Receive Date: 20120314
  Receipt Date: 20120305
  Transmission Date: 20120608
  Serious: Yes (Hospitalization, Disabling, Other)
  Sender: FDA-Public Use
  Company Number: US-ASTRAZENECA-2010SE24138

PATIENT
  Age: 47 Year
  Sex: Male

DRUGS (5)
  1. NEXIUM [Suspect]
     Route: 048
  2. SEROQUEL [Suspect]
     Indication: SCHIZOPHRENIA, PARANOID TYPE
     Dosage: UP TO 7 TABLETS DAILY
     Route: 048
  3. SEROQUEL [Suspect]
     Route: 048
  4. SEROQUEL [Suspect]
     Indication: BRAIN INJURY
     Dosage: UP TO 7 TABLETS DAILY
     Route: 048
  5. SEROQUEL [Suspect]
     Route: 048

REACTIONS (10)
  - DECREASED APPETITE [None]
  - MALAISE [None]
  - BRAIN INJURY [None]
  - ABDOMINAL PAIN UPPER [None]
  - DISABILITY [None]
  - DRUG DOSE OMISSION [None]
  - IRRITABILITY [None]
  - ACCIDENT AT WORK [None]
  - SCHIZOPHRENIA, PARANOID TYPE [None]
  - VOMITING [None]
